FAERS Safety Report 4837876-X (Version None)
Quarter: 2005Q4

REPORT INFORMATION
  Report Type: 
  Country: None (occurrence: None)
  Receive Date: 20051123
  Receipt Date: 20051123
  Transmission Date: 20060501
  Serious: No
  Sender: FDA-Public Use
  Company Number: None

PATIENT
  Sex: Female
  Weight: 52 kg

DRUGS (1)
  1. MEROPENEM [Suspect]
     Indication: LUNG INFECTION
     Dosage: 2 GRAMS Q 12 HRS IV
     Route: 042
     Dates: start: 20051017, end: 20051118

REACTIONS (6)
  - BACK PAIN [None]
  - CHEST DISCOMFORT [None]
  - CHILLS [None]
  - COUGH [None]
  - INFUSION RELATED REACTION [None]
  - PYREXIA [None]
